FAERS Safety Report 19498875 (Version 1)
Quarter: 2021Q3

REPORT INFORMATION
  Report Type: Spontaneous
  Country: AU (occurrence: AU)
  Receive Date: 20210707
  Receipt Date: 20210707
  Transmission Date: 20211014
  Serious: Yes (Other)
  Sender: FDA-Public Use
  Company Number: AU-B.I. PHARMACEUTICALS,INC./RIDGEFIELD-2021-BI-095682

PATIENT
  Age: 88 Year
  Sex: Male
  Weight: 57 kg

DRUGS (1)
  1. SIFROL [Suspect]
     Active Substance: PRAMIPEXOLE
     Indication: RESTLESS LEGS SYNDROME

REACTIONS (2)
  - Spinal pain [Not Recovered/Not Resolved]
  - Kyphosis [Not Recovered/Not Resolved]
